FAERS Safety Report 10444572 (Version 1)
Quarter: 2014Q3

REPORT INFORMATION
  Report Type: Report from Study
  Country: US (occurrence: US)
  Receive Date: 20140910
  Receipt Date: 20140910
  Transmission Date: 20150326
  Serious: Yes (Other)
  Sender: FDA-Public Use
  Company Number: US-ABBVIE-14K-163-1279087-00

PATIENT
  Age: 72 Year
  Sex: Female

DRUGS (6)
  1. DIAMOX SEQUELS [Suspect]
     Active Substance: ACETAZOLAMIDE
     Indication: PRODUCT USED FOR UNKNOWN INDICATION
  2. TRAZODONE [Concomitant]
     Active Substance: TRAZODONE HYDROCHLORIDE
     Indication: PRODUCT USED FOR UNKNOWN INDICATION
     Dosage: EVERY BEDTIME
  3. PROBIOTIC ACIDOPHILUS [Concomitant]
     Active Substance: LACTOBACILLUS ACIDOPHILUS
     Indication: PRODUCT USED FOR UNKNOWN INDICATION
  4. DIAMOX SEQUELS [Suspect]
     Active Substance: ACETAZOLAMIDE
     Dates: end: 201408
  5. HUMIRA [Suspect]
     Active Substance: ADALIMUMAB
     Indication: CROHN^S DISEASE
     Dates: start: 20140531
  6. MULTI-VIT [Concomitant]
     Active Substance: VITAMINS
     Indication: PRODUCT USED FOR UNKNOWN INDICATION

REACTIONS (11)
  - Eye operation complication [Recovering/Resolving]
  - Intraocular pressure increased [Recovering/Resolving]
  - Retinal detachment [Recovering/Resolving]
  - Somnolence [Recovering/Resolving]
  - Eye haemorrhage [Recovering/Resolving]
  - Altered visual depth perception [Not Recovered/Not Resolved]
  - Thinking abnormal [Recovering/Resolving]
  - Clumsiness [Recovering/Resolving]
  - Fatigue [Recovering/Resolving]
  - Gait disturbance [Recovering/Resolving]
  - Vision blurred [Recovering/Resolving]

NARRATIVE: CASE EVENT DATE: 2014
